FAERS Safety Report 7237353-5 (Version None)
Quarter: 2011Q1

REPORT INFORMATION
  Report Type: 
  Country: None (occurrence: None)
  Receive Date: 20110121
  Receipt Date: 20110113
  Transmission Date: 20110831
  Serious: Yes (Other)
  Sender: FDA-Public Use
  Company Number: US-ASTRAZENECA-2007UW01566

PATIENT
  Age: 13179 Day
  Sex: Male
  Weight: 230.4 kg

DRUGS (20)
  1. SEROQUEL [Suspect]
     Indication: ANXIETY
     Route: 048
     Dates: start: 20020101
  2. PROTONIX [Concomitant]
     Dates: start: 20070723
  3. SEROQUEL [Suspect]
     Dosage: 200 MG, 300 MG, 500 MG
     Route: 048
     Dates: start: 20030901, end: 20060201
  4. CATAPRES [Concomitant]
     Dates: start: 20070723
  5. SEROQUEL [Suspect]
     Indication: DEPRESSION
     Route: 048
     Dates: start: 20020101
  6. SEROQUEL [Suspect]
     Route: 048
     Dates: start: 20040309
  7. SEROQUEL [Suspect]
     Route: 048
     Dates: start: 20040309
  8. PHENOBARBITAL [Concomitant]
     Dates: start: 20070723
  9. DESYREL [Concomitant]
     Route: 048
     Dates: start: 20070723
  10. SEROQUEL [Suspect]
     Dosage: 200 MG, 300 MG, 500 MG
     Route: 048
     Dates: start: 20030901, end: 20060201
  11. RISPERDAL [Suspect]
     Indication: DEPRESSION
     Route: 065
     Dates: start: 19970201, end: 20030801
  12. ADVAIR DISKUS 100/50 [Concomitant]
     Dosage: 250/50 BID
     Dates: start: 20070723
  13. RANITIDINE [Concomitant]
     Dates: start: 20040301
  14. POTASSIUM CL ER [Concomitant]
     Dates: start: 20040223
  15. NEURONTIN [Concomitant]
     Dates: start: 20070723
  16. HYZAAR [Concomitant]
     Dosage: 50/12.5 MG Q.DAILY
     Dates: start: 20070723
  17. PAXIL [Concomitant]
     Dates: start: 20070723
  18. RISPERDAL [Suspect]
     Indication: ANXIETY
     Route: 065
     Dates: start: 19970201, end: 20030801
  19. MAXALT-MLT [Concomitant]
     Dates: start: 20040223
  20. DILANTIN [Concomitant]
     Dates: start: 20070723

REACTIONS (5)
  - WEIGHT INCREASED [None]
  - TYPE 2 DIABETES MELLITUS [None]
  - OBESITY [None]
  - DIABETIC NEUROPATHY [None]
  - NEUROPATHY PERIPHERAL [None]
